FAERS Safety Report 4743648-7 (Version None)
Quarter: 2005Q3

REPORT INFORMATION
  Report Type: 
  Country: None (occurrence: None)
  Receive Date: 20050809
  Receipt Date: 20050727
  Transmission Date: 20060218
  Serious: No
  Sender: FDA-Public Use
  Company Number: 11961

PATIENT
  Age: 13 Year
  Sex: Male

DRUGS (4)
  1. METHOTREXATE [Suspect]
     Indication: JUVENILE ARTHRITIS
     Dosage: 20 MG WEKLY, SC; 15 MG WEEKLY, PO
     Route: 058
     Dates: start: 20011201, end: 20050101
  2. METHOTREXATE [Suspect]
     Indication: JUVENILE ARTHRITIS
     Dosage: 20 MG WEKLY, SC; 15 MG WEEKLY, PO
     Route: 058
     Dates: start: 20041201
  3. ETANERCEPT [Suspect]
     Indication: JUVENILE ARTHRITIS
     Dosage: 16 MG 2/WK, SC
     Route: 058
     Dates: start: 20040801
  4. NAPROXEN [Concomitant]

REACTIONS (2)
  - LOCALISED INFECTION [None]
  - PARONYCHIA [None]
